FAERS Safety Report 4548787-1 (Version None)
Quarter: 2005Q1

REPORT INFORMATION
  Report Type: 
  Country: None (occurrence: None)
  Receive Date: 20050107
  Receipt Date: 20050107
  Transmission Date: 20050727
  Serious: Yes (Hospitalization)
  Sender: FDA-Public Use
  Company Number: None

PATIENT
  Age: 69 Year
  Sex: Male
  Weight: 68 kg

DRUGS (1)
  1. GABAPENTIN [Suspect]
     Indication: NEUROPATHY
     Dosage: 300 MG  AT NIGHT  ORAL
     Route: 048
     Dates: start: 20041214, end: 20041217

REACTIONS (4)
  - GRIMACING [None]
  - MOVEMENT DISORDER [None]
  - MUSCLE TWITCHING [None]
  - TARDIVE DYSKINESIA [None]
